FAERS Safety Report 6867750-9 (Version None)
Quarter: 2010Q3

REPORT INFORMATION
  Report Type: 
  Country: None (occurrence: None)
  Receive Date: 20100722
  Receipt Date: 20100712
  Transmission Date: 20110219
  Serious: Yes (Other)
  Sender: FDA-Public Use
  Company Number: US-BAXTER-2010BH015819

PATIENT
  Age: 61 Year
  Sex: Female
  Weight: 106 kg

DRUGS (2)
  1. DIANEAL [Suspect]
     Indication: PERITONEAL DIALYSIS
     Route: 033
     Dates: start: 20100609
  2. DIANEAL [Suspect]
     Route: 033
     Dates: start: 20100401, end: 20100608

REACTIONS (3)
  - BALANCE DISORDER [None]
  - FALL [None]
  - FOREARM FRACTURE [None]
